FAERS Safety Report 5123271-5 (Version None)
Quarter: 2006Q4

REPORT INFORMATION
  Report Type: 
  Country: None (occurrence: None)
  Receive Date: 20061009
  Receipt Date: 20060824
  Transmission Date: 20070319
  Serious: Yes (Other)
  Sender: FDA-Public Use
  Company Number: JP-JPN-A200603287

PATIENT
  Age: 51 Year
  Sex: Male
  Weight: 80 kg

DRUGS (3)
  1. PAXIL [Suspect]
     Indication: DEPRESSION
     Dosage: 40MG PER DAY
     Route: 048
     Dates: start: 20060227, end: 20060823
  2. TOFRANIL [Suspect]
     Indication: BIPOLAR I DISORDER
     Dosage: 20MG THREE TIMES PER DAY
     Dates: start: 20060728, end: 20060823
  3. LIMAS [Suspect]
     Indication: BIPOLAR I DISORDER
     Dosage: 200MG THREE TIMES PER DAY
     Route: 048
     Dates: start: 20060612, end: 20060823

REACTIONS (16)
  - ABDOMINAL DISCOMFORT [None]
  - ABDOMINAL PAIN [None]
  - ABULIA [None]
  - ANXIETY [None]
  - DIARRHOEA [None]
  - DYSKINESIA [None]
  - FLUSHING [None]
  - HEAD DISCOMFORT [None]
  - HEPATIC FUNCTION ABNORMAL [None]
  - HOT FLUSH [None]
  - HYPERHIDROSIS [None]
  - INSOMNIA [None]
  - MYOCLONUS [None]
  - PALPITATIONS [None]
  - PYREXIA [None]
  - SEROTONIN SYNDROME [None]
